FAERS Safety Report 13522517 (Version 1)
Quarter: 2017Q2

REPORT INFORMATION
  Report Type: Spontaneous
  Country: US (occurrence: US)
  Receive Date: 20170508
  Receipt Date: 20170508
  Transmission Date: 20170830
  Serious: Yes (Other)
  Sender: FDA-Public Use
  Company Number: US-TEVA-765692USA

PATIENT
  Age: 85 Year
  Sex: Female

DRUGS (9)
  1. LORAZEPAM. [Concomitant]
     Active Substance: LORAZEPAM
  2. CYMBALTA [Concomitant]
     Active Substance: DULOXETINE HYDROCHLORIDE
     Indication: ARTHRITIS
  3. MIRTAZAPINE. [Suspect]
     Active Substance: MIRTAZAPINE
     Dosage: TOOK 3 TIMES
     Route: 065
  4. JAKAFI [Suspect]
     Active Substance: RUXOLITINIB
     Indication: MYELOFIBROSIS
     Dosage: 20 MILLIGRAM DAILY;
     Route: 048
     Dates: start: 201608
  5. VITAMIN B12 [Concomitant]
     Active Substance: CYANOCOBALAMIN
  6. JAKAFI [Suspect]
     Active Substance: RUXOLITINIB
     Indication: POLYCYTHAEMIA VERA
     Dosage: 50 MILLIGRAM DAILY;
     Route: 048
     Dates: start: 20160324
  7. HYDROCODONE [Concomitant]
     Active Substance: HYDROCODONE
  8. JAKAFI [Suspect]
     Active Substance: RUXOLITINIB
     Indication: PLATELET DISORDER
  9. IRON [Concomitant]
     Active Substance: IRON

REACTIONS (19)
  - Loss of consciousness [Recovered/Resolved]
  - Abasia [Recovered/Resolved]
  - Vomiting [Unknown]
  - Self-induced vomiting [Unknown]
  - Tremor [Unknown]
  - Fall [Recovered/Resolved]
  - Faeces discoloured [Unknown]
  - Feeling abnormal [Recovered/Resolved]
  - Memory impairment [Unknown]
  - Nervousness [Unknown]
  - Dizziness [Unknown]
  - Loss of personal independence in daily activities [Unknown]
  - Fatigue [Not Recovered/Not Resolved]
  - Restless legs syndrome [Unknown]
  - Musculoskeletal disorder [Unknown]
  - Arthralgia [Not Recovered/Not Resolved]
  - Peripheral coldness [Unknown]
  - Pain in extremity [Not Recovered/Not Resolved]
  - Nausea [Unknown]

NARRATIVE: CASE EVENT DATE: 201607
